FAERS Safety Report 6272608-2 (Version None)
Quarter: 2009Q3

REPORT INFORMATION
  Report Type: 
  Country: None (occurrence: None)
  Receive Date: 20090713
  Receipt Date: 20090304
  Transmission Date: 20100115
  Serious: Yes (Other)
  Sender: FDA-Public Use
  Company Number: 619904

PATIENT
  Age: 70 Year
  Sex: Female

DRUGS (3)
  1. BONIVA [Suspect]
     Indication: OSTEOPENIA
     Dosage: 150 MG  1 PER MONTH  ORAL
     Route: 048
     Dates: start: 20081002, end: 20090201
  2. DIOVAN HCT [Concomitant]
  3. PLAVIX [Concomitant]

REACTIONS (2)
  - GINGIVAL INFECTION [None]
  - OSTEOMYELITIS [None]
